FAERS Safety Report 7627521-2 (Version None)
Quarter: 2011Q3

REPORT INFORMATION
  Report Type: 
  Country: None (occurrence: None)
  Receive Date: 20110721
  Receipt Date: 20110712
  Transmission Date: 20111222
  Serious: Yes (Hospitalization)
  Sender: FDA-Public Use
  Company Number: US-ABBOTT-11P-163-0838754-00

PATIENT
  Age: 30 Year
  Sex: Male

DRUGS (5)
  1. X-EIRMAN [Concomitant]
     Indication: DYSPEPSIA
     Dosage: 9 CAPS DAILY
  2. IODINE [Concomitant]
     Indication: SUPPLEMENTATION THERAPY
     Dosage: 24 DROPS DAILY
  3. HUMIRA [Suspect]
     Indication: PSORIASIS
     Dates: start: 20081101, end: 20110507
  4. MERIVA [Concomitant]
     Indication: INFLAMMATION
     Dosage: 9 CAPS DAILY
  5. VITAMIN D6 [Concomitant]
     Indication: VITAMIN SUPPLEMENTATION
     Dosage: 6 TSPS DAILY

REACTIONS (7)
  - INFECTION [None]
  - HEPATOMEGALY [None]
  - CARDIOMEGALY [None]
  - SPLENOMEGALY [None]
  - HEPATIC STEATOSIS [None]
  - ABDOMINAL PAIN LOWER [None]
  - FREQUENT BOWEL MOVEMENTS [None]
